FAERS Safety Report 5032155-2 (Version None)
Quarter: 2006Q2

REPORT INFORMATION
  Report Type: 
  Country: None (occurrence: None)
  Receive Date: 20060619
  Receipt Date: 20060606
  Transmission Date: 20061013
  Serious: Yes (Hospitalization)
  Sender: FDA-Public Use
  Company Number: 2006BI008164

PATIENT
  Age: 49 Year
  Sex: Female
  Weight: 59.8748 kg

DRUGS (5)
  1. AVONEX [Suspect]
     Indication: MULTIPLE SCLEROSIS
     Dosage: 30 UG;QW;IM
     Route: 030
     Dates: start: 19980601
  2. AVONEX [Suspect]
     Indication: MULTIPLE SCLEROSIS
     Dosage: 30 UG;QW;IM
     Route: 030
  3. TIZANADINE [Concomitant]
  4. NAPROXEN SODIUM [Concomitant]
  5. VITAMIN B COMPLEX CAP [Concomitant]

REACTIONS (10)
  - ANAEMIA [None]
  - BLOOD CHOLESTEROL INCREASED [None]
  - CARDIAC FAILURE CONGESTIVE [None]
  - CARDIAC MURMUR [None]
  - DEPRESSION [None]
  - FIBROMYALGIA [None]
  - INFLAMMATION [None]
  - MITRAL VALVE CALCIFICATION [None]
  - PERICARDIAL HAEMORRHAGE [None]
  - TRIGEMINAL NEURALGIA [None]
